FAERS Safety Report 12225081 (Version 1)
Quarter: 2016Q1

REPORT INFORMATION
  Report Type: Spontaneous
  Country: JP (occurrence: JP)
  Receive Date: 20160331
  Receipt Date: 20160331
  Transmission Date: 20160526
  Serious: Yes (Other)
  Sender: FDA-Public Use
  Company Number: PHJP2016JP006498

PATIENT
  Age: 88 Year
  Sex: Male

DRUGS (1)
  1. EXELON PATCH [Suspect]
     Active Substance: RIVASTIGMINE
     Indication: DEMENTIA ALZHEIMER^S TYPE
     Dosage: 4.6MG/24H (PATCH5, 9 MG RIVASTIGMINE BASE)
     Route: 062
     Dates: start: 20160310, end: 20160317

REACTIONS (1)
  - Blood cholinesterase decreased [Not Recovered/Not Resolved]

NARRATIVE: CASE EVENT DATE: 20160318
